FAERS Safety Report 24308389 (Version 1)
Quarter: 2024Q3

REPORT INFORMATION
  Report Type: Spontaneous
  Country: US (occurrence: US)
  Receive Date: 20240911
  Receipt Date: 20240911
  Transmission Date: 20241017
  Serious: Yes (Death, Other)
  Sender: GILEAD
  Company Number: US-GILEAD-2024-0686878

PATIENT
  Sex: Male

DRUGS (6)
  1. EPCLUSA [Suspect]
     Active Substance: SOFOSBUVIR\VELPATASVIR
     Indication: Chronic hepatitis C
     Dosage: 1 DOSAGE FORM, QD (TAKE 1 TABLET BY MOUTH ONCE DAILY FOR 12 WEEKS)
     Route: 048
  2. OXITRIPTAN [Concomitant]
     Active Substance: OXITRIPTAN
  3. CALCIUM D GLUCARATE [Concomitant]
  4. TAURINE [Concomitant]
     Active Substance: TAURINE
  5. BIFIDOBACTERIUM ANIMALIS LACTIS [Concomitant]
     Active Substance: BIFIDOBACTERIUM ANIMALIS LACTIS
  6. VITAL [MINERALS NOS;VITAMINS NOS] [Concomitant]

REACTIONS (2)
  - Death [Fatal]
  - Disease progression [Unknown]
